FAERS Safety Report 7473596-3 (Version None)
Quarter: 2011Q2

REPORT INFORMATION
  Report Type: 
  Country: None (occurrence: None)
  Receive Date: 20110511
  Receipt Date: 20110503
  Transmission Date: 20111010
  Serious: No
  Sender: FDA-Public Use
  Company Number: US-ROXANE LABORATORIES, INC.-2011-RO-00437RO

PATIENT
  Sex: Female

DRUGS (2)
  1. DOXYCYCLINE [Concomitant]
  2. FLUTICASONE PROPIONATE [Suspect]
     Indication: RHINITIS SEASONAL
     Route: 045
     Dates: start: 20110329, end: 20110329

REACTIONS (3)
  - HEADACHE [None]
  - PAROSMIA [None]
  - ABDOMINAL DISCOMFORT [None]
